FAERS Safety Report 10271710 (Version 1)
Quarter: 2014Q3

REPORT INFORMATION
  Report Type: Spontaneous
  Country: US (occurrence: US)
  Receive Date: 20140701
  Receipt Date: 20140701
  Transmission Date: 20150326
  Serious: No
  Sender: FDA-Public Use
  Company Number: US-SA-2014SA027462

PATIENT
  Age: 17 Year
  Sex: Male
  Weight: 46.7 kg

DRUGS (1)
  1. CEREZYME [Suspect]
     Active Substance: IMIGLUCERASE
     Indication: GAUCHER^S DISEASE
     Dosage: DOSE:59.95 UNIT(S)/KILOGRAM BODYWEIGHT
     Route: 042

REACTIONS (2)
  - Visual impairment [Not Recovered/Not Resolved]
  - Deposit eye [Not Recovered/Not Resolved]
